FAERS Safety Report 4580012-8 (Version None)
Quarter: 2005Q1

REPORT INFORMATION
  Report Type: 
  Country: None (occurrence: None)
  Receive Date: 20050210
  Receipt Date: 20050131
  Transmission Date: 20050727
  Serious: Yes (Death)
  Sender: FDA-Public Use
  Company Number: MK200502-0032-1

PATIENT
  Age: 45 Year
  Sex: Female

DRUGS (11)
  1. METHADOSE [Suspect]
     Indication: PAIN
     Dosage: 40 MG, BID, PO
     Route: 048
     Dates: start: 20040329, end: 20040331
  2. NEURONTIN [Concomitant]
  3. NEXIUM [Concomitant]
  4. XANAX [Concomitant]
  5. AMBIEN [Concomitant]
  6. KEPPRA [Concomitant]
  7. VICODIN [Concomitant]
  8. ZYRTEC [Concomitant]
  9. LIDODERM [Concomitant]
  10. NIFEDIPINE [Concomitant]
  11. ALBUTEROL [Concomitant]

REACTIONS (2)
  - OVERDOSE [None]
  - RESPIRATORY ARREST [None]
